FAERS Safety Report 23592778 (Version 1)
Quarter: 2024Q1

REPORT INFORMATION
  Report Type: Spontaneous
  Country: US (occurrence: None)
  Receive Date: 20240303
  Receipt Date: 20240303
  Transmission Date: 20240410
  Serious: Yes (Life-Threatening, Other)
  Sender: FDA-Public Use
  Company Number: None

PATIENT
  Age: 44 Year
  Sex: Male
  Weight: 81 kg

DRUGS (4)
  1. PALIPERIDONE [Suspect]
     Active Substance: PALIPERIDONE
     Indication: Delusional disorder, unspecified type
     Dosage: 15 TABLETS ORAL
     Route: 048
     Dates: start: 20240213, end: 20240215
  2. PALIPERIDONE [Suspect]
     Active Substance: PALIPERIDONE
     Indication: Factitious disorder
  3. THYROID [Concomitant]
     Active Substance: LEVOTHYROXINE\LIOTHYRONINE
  4. LEVOTHYROXINE [Concomitant]
     Active Substance: LEVOTHYROXINE\LEVOTHYROXINE SODIUM

REACTIONS (12)
  - Blood pressure abnormal [None]
  - Body temperature abnormal [None]
  - Respiratory disorder [None]
  - Memory impairment [None]
  - Coordination abnormal [None]
  - Mental impairment [None]
  - Cognitive disorder [None]
  - Aphasia [None]
  - Hangover [None]
  - Product complaint [None]
  - Near death experience [None]
  - Victim of crime [None]

NARRATIVE: CASE EVENT DATE: 20240220
